FAERS Safety Report 9116660 (Version 1)
Quarter: 2013Q1

REPORT INFORMATION
  Report Type: Spontaneous
  Country: US (occurrence: US)
  Receive Date: 20130225
  Receipt Date: 20130225
  Transmission Date: 20140127
  Serious: No
  Sender: FDA-Public Use
  Company Number: US-009507513-1302USA003629

PATIENT
  Age: 88 Year
  Sex: Female
  Weight: 50.8 kg

DRUGS (3)
  1. AZASITE [Suspect]
     Dosage: 1 GTT, QD
     Route: 047
     Dates: start: 20090319
  2. LEVOTHYROXINE SODIUM [Concomitant]
  3. VITAMINS (UNSPECIFIED) [Concomitant]

REACTIONS (1)
  - Eye irritation [Recovered/Resolved]
